FAERS Safety Report 9322764 (Version 3)
Quarter: 2013Q4

REPORT INFORMATION
  Report Type: Spontaneous
  Country: US (occurrence: US)
  Receive Date: 20130601
  Receipt Date: 20131101
  Transmission Date: 20140711
  Serious: Yes (Disabling)
  Sender: FDA-Public Use
  Company Number: US-ASTRAZENECA-2013SE38679

PATIENT
  Age: 18487 Day
  Sex: Female
  Weight: 56.2 kg

DRUGS (12)
  1. NEXIUM [Suspect]
     Indication: GASTROOESOPHAGEAL REFLUX DISEASE
     Route: 048
     Dates: start: 2001, end: 2003
  2. NEXIUM [Suspect]
     Indication: GASTROOESOPHAGEAL REFLUX DISEASE
     Route: 048
     Dates: start: 20100407, end: 20100507
  3. PREVACID [Suspect]
     Indication: GASTROOESOPHAGEAL REFLUX DISEASE
     Route: 065
     Dates: start: 20020924, end: 2003
  4. EFFEXOR XR [Concomitant]
     Indication: DEPRESSION
  5. KLONOPIN [Concomitant]
     Indication: DEPRESSION
  6. INVEGA [Concomitant]
     Indication: DEPRESSION
  7. SOMA [Concomitant]
     Indication: PAIN
  8. VICODIN [Concomitant]
     Indication: PAIN
  9. LIDODERM [Concomitant]
     Indication: PAIN
     Dosage: FIVE PERCENT PATCH
  10. ZELNORM [Concomitant]
  11. NEURONTIN [Concomitant]
  12. LIFFEXOR [Concomitant]

REACTIONS (10)
  - Fibromyalgia [Unknown]
  - Osteoporosis [Unknown]
  - Multiple fractures [Unknown]
  - Foot fracture [Unknown]
  - Bone disorder [Unknown]
  - Anxiety [Unknown]
  - Pain [Unknown]
  - Fall [Unknown]
  - Arthralgia [Unknown]
  - Depression [Unknown]
